FAERS Safety Report 5919366-6 (Version None)
Quarter: 2008Q4

REPORT INFORMATION
  Report Type: 
  Country: None (occurrence: None)
  Receive Date: 20081015
  Receipt Date: 20081013
  Transmission Date: 20090506
  Serious: Yes (Death, Hospitalization)
  Sender: FDA-Public Use
  Company Number: B0392183A

PATIENT
  Age: 9 Month
  Sex: Male
  Weight: 3 kg

DRUGS (7)
  1. ALBENDAZOLE [Suspect]
     Indication: HELMINTHIC INFECTION
     Dosage: 400MG SINGLE DOSE
     Dates: start: 20040430, end: 20040430
  2. PRAZIQUANTEL [Suspect]
     Indication: HELMINTHIC INFECTION
     Dosage: 40MGK SINGLE DOSE
     Dates: start: 20040430, end: 20040430
  3. NEVIRAPINE [Concomitant]
     Indication: HIV INFECTION
  4. PENICILLIN [Concomitant]
  5. HERBAL MEDICATION [Concomitant]
  6. FERROUS SULFATE TAB [Concomitant]
  7. FOLIC ACID [Concomitant]

REACTIONS (6)
  - BIRTH MARK [None]
  - DEHYDRATION [None]
  - DIARRHOEA [None]
  - DRUG EXPOSURE DURING PREGNANCY [None]
  - PYREXIA [None]
  - VOMITING [None]
